FAERS Safety Report 16896372 (Version 2)
Quarter: 2020Q2

REPORT INFORMATION
  Report Type: Report from Study
  Country: CH (occurrence: CH)
  Receive Date: 20191008
  Receipt Date: 20200611
  Transmission Date: 20200713
  Serious: No
  Sender: FDA-Public Use
  Company Number: CH-BEH-2016074561

PATIENT
  Sex: Male

DRUGS (2)
  1. HIZENTRA [Suspect]
     Active Substance: HUMAN IMMUNOGLOBULIN G
     Indication: IMMUNODEFICIENCY
     Dosage: 7 G, QW
     Route: 058
     Dates: start: 20161013, end: 201810
  2. HIZENTRA [Suspect]
     Active Substance: HUMAN IMMUNOGLOBULIN G
     Dosage: 7 G, QOW
     Route: 058
     Dates: start: 20181101

REACTIONS (4)
  - Injection site induration [Recovered/Resolved]
  - Injection site induration [Recovering/Resolving]
  - Injection site induration [Recovering/Resolving]
  - Injection site induration [Recovering/Resolving]

NARRATIVE: CASE EVENT DATE: 2016
